FAERS Safety Report 7035652-3 (Version None)
Quarter: 2010Q4

REPORT INFORMATION
  Report Type: 
  Country: None (occurrence: None)
  Receive Date: 20101007
  Receipt Date: 20101007
  Transmission Date: 20110411
  Serious: Yes (Hospitalization)
  Sender: FDA-Public Use
  Company Number: None

PATIENT
  Age: 66 Year
  Sex: Male
  Weight: 72 kg

DRUGS (8)
  1. DOCETAXEL [Suspect]
     Indication: NON-SMALL CELL LUNG CANCER
     Dosage: 104MG (56.2MG/M2) IV, QDAY1
     Route: 042
     Dates: start: 20100819
  2. GEMCITABINE [Suspect]
     Indication: NON-SMALL CELL LUNG CANCER
     Dosage: 1256MG675MG/M2IV, DAY1, 8
     Route: 042
     Dates: start: 20100819
  3. CITALOPRAM HYDROBROMIDE [Concomitant]
  4. SENOSIDES/DOCUSATE SODIUM [Concomitant]
  5. VICODIN [Concomitant]
  6. OXYCODONE HCL [Concomitant]
  7. LISINOPRIL [Concomitant]
  8. DEXAMETHASONE [Concomitant]

REACTIONS (4)
  - ANAEMIA [None]
  - ASTHENIA [None]
  - BACK PAIN [None]
  - THROMBOCYTOPENIA [None]
